FAERS Safety Report 16107984 (Version 4)
Quarter: 2019Q3

REPORT INFORMATION
  Report Type: Report from Study
  Country: DO (occurrence: DO)
  Receive Date: 20190322
  Receipt Date: 20190815
  Transmission Date: 20191004
  Serious: Yes (Hospitalization, Other)
  Sender: FDA-Public Use
  Company Number: PHHY2019DO028728

PATIENT
  Age: 71 Year
  Sex: Female

DRUGS (2)
  1. GILENYA [Suspect]
     Active Substance: FINGOLIMOD HYDROCHLORIDE
     Indication: PRODUCT USED FOR UNKNOWN INDICATION
     Dosage: 0.5 MG, UNK
     Route: 065
  2. TRILEPTAL [Suspect]
     Active Substance: OXCARBAZEPINE
     Indication: THYROID DISORDER
     Dosage: UNK
     Route: 065

REACTIONS (21)
  - Fall [Unknown]
  - Hypertension [Recovering/Resolving]
  - Herpes zoster [Recovering/Resolving]
  - Tremor [Unknown]
  - Back pain [Unknown]
  - Pain in extremity [Unknown]
  - Dermatitis [Unknown]
  - Pruritus [Unknown]
  - Dizziness [Unknown]
  - Skin lesion [Unknown]
  - Head injury [Unknown]
  - Somnolence [Unknown]
  - Malaise [Unknown]
  - Multiple sclerosis [Unknown]
  - Pain [Unknown]
  - Nerve injury [Unknown]
  - Discomfort [Unknown]
  - Bronchial disorder [Unknown]
  - Eye disorder [Unknown]
  - Influenza [Unknown]
  - Product use in unapproved indication [Unknown]
